FAERS Safety Report 9556981 (Version 1)
Quarter: 2013Q3

REPORT INFORMATION
  Report Type: Spontaneous
  Country: JP (occurrence: JP)
  Receive Date: 20130926
  Receipt Date: 20130926
  Transmission Date: 20140515
  Serious: Yes (Hospitalization)
  Sender: FDA-Public Use
  Company Number: PHHY2013JP100592

PATIENT
  Sex: Male

DRUGS (4)
  1. CARBOPLATIN [Suspect]
     Dosage: 750 MG, UNK
  2. PACLITAXEL [Suspect]
  3. LOXOPROFEN SODIUM [Concomitant]
  4. ACETAMINOPHEN [Concomitant]

REACTIONS (5)
  - Posterior reversible encephalopathy syndrome [Recovering/Resolving]
  - Headache [Recovering/Resolving]
  - Eyelid ptosis [Recovering/Resolving]
  - Brain oedema [Recovering/Resolving]
  - Hypertension [Recovering/Resolving]
